FAERS Safety Report 18313657 (Version 2)
Quarter: 2020Q4

REPORT INFORMATION
  Report Type: Spontaneous
  Country: FR (occurrence: FR)
  Receive Date: 20200925
  Receipt Date: 20201123
  Transmission Date: 20210113
  Serious: Yes (Hospitalization, Disabling)
  Sender: FDA-Public Use
  Company Number: FR-ALLERGAN-2036310US

PATIENT
  Sex: Male

DRUGS (7)
  1. PRIVIGEN [Concomitant]
     Active Substance: HUMAN IMMUNOGLOBULIN G
  2. NOVOMID [Concomitant]
  3. TOUJEO [Concomitant]
     Active Substance: INSULIN GLARGINE
  4. OZURDEX [Suspect]
     Active Substance: DEXAMETHASONE
     Indication: DIABETIC RETINAL OEDEMA
     Dosage: 0.7 MG, SINGLE
     Route: 031
     Dates: start: 20200901, end: 20200901
  5. METFORMIN [Concomitant]
     Active Substance: METFORMIN HYDROCHLORIDE
  6. ATENOLOL. [Concomitant]
     Active Substance: ATENOLOL
  7. KARDEGIC [Concomitant]
     Active Substance: ASPIRIN DL-LYSINE

REACTIONS (6)
  - Eye haemorrhage [Recovering/Resolving]
  - Intraocular haematoma [Recovering/Resolving]
  - Complication of device insertion [Unknown]
  - Product administered at inappropriate site [Unknown]
  - Blindness transient [Recovered/Resolved]
  - Hypertonia [Recovering/Resolving]

NARRATIVE: CASE EVENT DATE: 20200901
